FAERS Safety Report 25356575 (Version 2)
Quarter: 2025Q3

REPORT INFORMATION
  Report Type: Spontaneous
  Country: CA (occurrence: CA)
  Receive Date: 20250526
  Receipt Date: 20250918
  Transmission Date: 20251020
  Serious: Yes (Death)
  Sender: ROCHE
  Company Number: CA-ROCHE-10000291371

PATIENT
  Age: 72 Year
  Sex: Female
  Weight: 32 kg

DRUGS (4)
  1. RITUXIMAB [Suspect]
     Active Substance: RITUXIMAB
     Indication: Rheumatoid arthritis
     Route: 042
  2. RITUXIMAB [Suspect]
     Active Substance: RITUXIMAB
     Route: 042
  3. RITUXIMAB [Suspect]
     Active Substance: RITUXIMAB
     Route: 042
  4. RITUXIMAB [Suspect]
     Active Substance: RITUXIMAB
     Route: 042

REACTIONS (12)
  - Illness [Fatal]
  - Product dose omission issue [Fatal]
  - Viral infection [Fatal]
  - Blood pressure abnormal [Fatal]
  - Chronic obstructive pulmonary disease [Fatal]
  - Dizziness [Fatal]
  - General physical health deterioration [Fatal]
  - Headache [Fatal]
  - Hyperhidrosis [Fatal]
  - Infection [Fatal]
  - Lower respiratory tract infection [Fatal]
  - Vein collapse [Fatal]
